FAERS Safety Report 5415422-X (Version None)
Quarter: 2007Q3

REPORT INFORMATION
  Report Type: 
  Country: None (occurrence: None)
  Receive Date: 20070815
  Receipt Date: 20070802
  Transmission Date: 20080115
  Serious: Yes (Hospitalization, Disabling, Other)
  Sender: FDA-Public Use
  Company Number: DE-PURDUE-DEU_2007_0003202

PATIENT
  Age: 50 Year
  Sex: Male

DRUGS (1)
  1. MORPHINE SULFATE [Suspect]
     Indication: BACK PAIN
     Dosage: UNK, UNK
     Route: 037

REACTIONS (10)
  - ANXIETY [None]
  - DELUSION [None]
  - EPILEPSY [None]
  - HALLUCINATION [None]
  - HYPERTENSIVE CRISIS [None]
  - LEUKOENCEPHALOPATHY [None]
  - MENTAL IMPAIRMENT [None]
  - NOCTURNAL DYSPNOEA [None]
  - OXYGEN SATURATION DECREASED [None]
  - PARESIS [None]
